FAERS Safety Report 15050074 (Version 1)
Quarter: 2018Q2

REPORT INFORMATION
  Report Type: Spontaneous
  Country: US (occurrence: US)
  Receive Date: 20180601
  Receipt Date: 20180601
  Transmission Date: 20180711
  Serious: No
  Sender: FDA-Public Use
  Company Number: None

PATIENT
  Age: 60 Year
  Sex: Female

DRUGS (1)
  1. TALTZ [Suspect]
     Active Substance: IXEKIZUMAB
     Route: 058
     Dates: start: 20170922, end: 20180601

REACTIONS (4)
  - Psoriasis [None]
  - Device malfunction [None]
  - Drug dose omission [None]
  - Condition aggravated [None]

NARRATIVE: CASE EVENT DATE: 20180601
